FAERS Safety Report 5946616-2 (Version None)
Quarter: 2008Q4

REPORT INFORMATION
  Report Type: 
  Country: None (occurrence: None)
  Receive Date: 20081110
  Receipt Date: 20081028
  Transmission Date: 20090506
  Serious: Yes (Hospitalization)
  Sender: FDA-Public Use
  Company Number: US-ROCHE-593959

PATIENT
  Age: 61 Year
  Sex: Female
  Weight: 58 kg

DRUGS (2)
  1. CAPECITABINE [Suspect]
     Dosage: FREQUENCY: 2500 MG BID D1-7 Q14D DRUG NAME REPORTED AS CAPECITABINE 500 MG AND 150 MG
     Route: 048
     Dates: start: 20081006, end: 20081012
  2. PHY906 [Suspect]
     Dosage: FREQUENCY: 800 MG BID D1-4 Q14D
     Route: 048
     Dates: start: 20081006, end: 20081009

REACTIONS (3)
  - ALANINE AMINOTRANSFERASE INCREASED [None]
  - BILE DUCT STENOSIS [None]
  - BLOOD BILIRUBIN INCREASED [None]
